FAERS Safety Report 5825774-4 (Version None)
Quarter: 2008Q3

REPORT INFORMATION
  Report Type: 
  Country: None (occurrence: None)
  Receive Date: 20080723
  Receipt Date: 20080714
  Transmission Date: 20090109
  Serious: Yes (Other)
  Sender: FDA-Public Use
  Company Number: JHP200800189

PATIENT
  Age: 35 Year
  Sex: Female
  Weight: 194 kg

DRUGS (11)
  1. PITOCIN [Suspect]
     Indication: POSTPARTUM HAEMORRHAGE
     Dosage: 3 UNIT, BOLUS, IV BOLUS
     Route: 040
  2. ACETAMINOPHEN [Concomitant]
  3. ALBUTEROL SULFATE [Concomitant]
  4. METOCLOPRAMIDE [Concomitant]
  5. FAMOTIDINE [Concomitant]
  6. MAGNESIUM SULFATE [Concomitant]
  7. BUPIVACAINE [Concomitant]
  8. FENTANYL [Concomitant]
  9. MORPHINE [Concomitant]
  10. PHENYLEPHRINE (PHENYLEPHRINE) [Concomitant]
  11. SODIUM CHLORIDE [Concomitant]

REACTIONS (1)
  - HYPOTENSION [None]
